FAERS Safety Report 6233819-5 (Version None)
Quarter: 2009Q2

REPORT INFORMATION
  Report Type: 
  Country: None (occurrence: None)
  Receive Date: 20090618
  Receipt Date: 20090612
  Transmission Date: 20091009
  Serious: Yes (Hospitalization)
  Sender: FDA-Public Use
  Company Number: GB-PFIZER INC-2009226692

PATIENT
  Age: 31 Year

DRUGS (3)
  1. PREDNISOLONE AND PREDNISOLONE STEAGLATE [Suspect]
     Indication: WEGENER'S GRANULOMATOSIS
     Dosage: 60 MG, 1X/DAY
     Route: 048
  2. CYCLOPHOSPHAMIDE [Suspect]
     Indication: WEGENER'S GRANULOMATOSIS
     Dosage: 100 MG, 1X/DAY
     Route: 048
  3. IBUPROFEN [Concomitant]

REACTIONS (1)
  - PULMONARY EMBOLISM [None]
